FAERS Safety Report 6440567-5 (Version None)
Quarter: 2009Q4

REPORT INFORMATION
  Report Type: 
  Country: None (occurrence: None)
  Receive Date: 20091113
  Receipt Date: 20091105
  Transmission Date: 20100525
  Serious: Yes (Hospitalization)
  Sender: FDA-Public Use
  Company Number: IN-WATSON-2009-09059

PATIENT
  Age: 25 Year
  Sex: Female
  Weight: 44 kg

DRUGS (5)
  1. MORPHINE SULFATE INJ [Suspect]
     Indication: SURGERY
     Dosage: 4.5 MG, SINGLE
     Route: 030
  2. PROMETHAZINE HYDROCHLORIDE (WATSON LABORATORIES) [Suspect]
     Indication: SURGERY
     Dosage: 25 MG, SINGLE
     Route: 030
  3. ENALAPRIL (WATSON LABORATORIES) [Suspect]
     Indication: CARDIAC FAILURE CONGESTIVE
     Dosage: 2.5 MG, BID
     Route: 048
  4. DIGOXIN [Suspect]
     Indication: CARDIAC FAILURE CONGESTIVE
     Dosage: 0.25 MG, DAILY
     Route: 048
  5. FUROSEMIDE W/POTASSIUM CHLORIDE [Suspect]
     Indication: CARDIAC FAILURE CONGESTIVE
     Route: 048

REACTIONS (2)
  - CARDIAC ARREST [None]
  - HYPERKALAEMIA [None]
